FAERS Safety Report 8020603-5 (Version None)
Quarter: 2012Q1

REPORT INFORMATION
  Report Type: 
  Country: None (occurrence: None)
  Receive Date: 20120103
  Receipt Date: 20111222
  Transmission Date: 20120608
  Serious: Yes (Hospitalization, Other)
  Sender: FDA-Public Use
  Company Number: US-ASTRAZENECA-2011SE48718

PATIENT
  Age: 66 Year
  Sex: Female
  Weight: 99.8 kg

DRUGS (3)
  1. CRESTOR [Suspect]
     Route: 048
  2. ELAVIL [Concomitant]
  3. POTASSIUM CHLORIDE [Concomitant]

REACTIONS (10)
  - SYSTEMIC LUPUS ERYTHEMATOSUS [None]
  - SEPSIS [None]
  - NEURALGIA [None]
  - INSOMNIA [None]
  - DRY GANGRENE [None]
  - CARDIAC DISORDER [None]
  - PAIN IN EXTREMITY [None]
  - DEPRESSION [None]
  - PNEUMONIA [None]
  - MUSCULOSKELETAL PAIN [None]
